FAERS Safety Report 21282946 (Version 2)
Quarter: 2022Q4

REPORT INFORMATION
  Report Type: Spontaneous
  Country: US (occurrence: US)
  Receive Date: 20220901
  Receipt Date: 20221024
  Transmission Date: 20230113
  Serious: Yes (Congenital Anomaly, Other)
  Sender: FDA-Public Use
  Company Number: US-VERTEX PHARMACEUTICALS-2022-003676

PATIENT
  Age: 31 Year
  Sex: Female

DRUGS (1)
  1. TRIKAFTA [Suspect]
     Active Substance: ELEXACAFTOR\IVACAFTOR\TEZACAFTOR
     Indication: Cystic fibrosis
     Dosage: FREQ UNK
     Route: 048
     Dates: start: 20210401

REACTIONS (8)
  - Abortion induced [Unknown]
  - Hydronephrosis [Unknown]
  - Intestinal dilatation [Unknown]
  - Cerebral ventricle dilatation [Unknown]
  - Benign enlargement of the subarachnoid spaces [Unknown]
  - Polymicrogyria [Unknown]
  - Cerebellar hypoplasia [Unknown]
  - Exposure during pregnancy [Unknown]

NARRATIVE: CASE EVENT DATE: 20220101
